FAERS Safety Report 17515746 (Version 1)
Quarter: 2020Q1

REPORT INFORMATION
  Report Type: Spontaneous
  Country: FR (occurrence: FR)
  Receive Date: 20200309
  Receipt Date: 20200309
  Transmission Date: 20200409
  Serious: Yes (Death, Hospitalization, Other)
  Sender: FDA-Public Use
  Company Number: FR-AMGEN-FRASP2020037321

PATIENT
  Age: 56 Year
  Sex: Male
  Weight: 74 kg

DRUGS (2)
  1. ENBREL [Suspect]
     Active Substance: ETANERCEPT
     Dosage: 50 MILLIGRAM, QWK
     Route: 058
     Dates: start: 20200107, end: 20200130
  2. ENBREL [Suspect]
     Active Substance: ETANERCEPT
     Indication: SUBCORNEAL PUSTULAR DERMATOSIS
     Dosage: 50 MILLIGRAM, QWK
     Route: 058
     Dates: start: 201506, end: 20191208

REACTIONS (9)
  - Demyelination [Fatal]
  - Monoparesis [Fatal]
  - Noninfective encephalitis [Fatal]
  - Dysarthria [Fatal]
  - Product use in unapproved indication [Unknown]
  - Facial paralysis [Fatal]
  - Off label use [Unknown]
  - Aphasia [Fatal]
  - Coma [Fatal]

NARRATIVE: CASE EVENT DATE: 201506
